FAERS Safety Report 8997596 (Version 3)
Quarter: 2013Q1

REPORT INFORMATION
  Report Type: Spontaneous
  Country: US (occurrence: US)
  Receive Date: 20130104
  Receipt Date: 20130221
  Transmission Date: 20140127
  Serious: No
  Sender: FDA-Public Use
  Company Number: US-ASTRAZENECA-2012SE93616

PATIENT
  Age: 69 Year
  Sex: Female
  Weight: 54.4 kg

DRUGS (4)
  1. CRESTOR [Suspect]
     Indication: BLOOD CHOLESTEROL INCREASED
     Route: 048
     Dates: start: 2009
  2. NIASPAN [Suspect]
     Indication: BLOOD CHOLESTEROL
     Route: 065
     Dates: start: 2010, end: 20121025
  3. NIASPAN [Suspect]
     Indication: BLOOD CHOLESTEROL
     Route: 065
  4. ALENDRONATE [Concomitant]

REACTIONS (5)
  - Flushing [Recovered/Resolved]
  - Blood lactate dehydrogenase increased [Unknown]
  - Rash [Recovered/Resolved]
  - Low density lipoprotein increased [Unknown]
  - Drug ineffective [Unknown]
